FAERS Safety Report 4569565-3 (Version None)
Quarter: 2005Q1

REPORT INFORMATION
  Report Type: 
  Country: None (occurrence: None)
  Receive Date: 20050201
  Receipt Date: 20050117
  Transmission Date: 20050727
  Serious: No
  Sender: FDA-Public Use
  Company Number: 2005AC00021

PATIENT
  Sex: Female

DRUGS (3)
  1. TAMOXIFEN CITRATE [Suspect]
     Indication: BREAST CANCER
     Dosage: 20 MG DAILY PO
     Route: 048
     Dates: start: 20000508, end: 20040730
  2. EFFEXOR [Concomitant]
  3. LOSEC MUPS [Concomitant]

REACTIONS (2)
  - OPTIC NERVE DISORDER [None]
  - VISUAL DISTURBANCE [None]
